FAERS Safety Report 19110646 (Version 1)
Quarter: 2021Q2

REPORT INFORMATION
  Report Type: Spontaneous
  Country: US (occurrence: US)
  Receive Date: 20210408
  Receipt Date: 20210408
  Transmission Date: 20210717
  Serious: Yes (Other)
  Sender: FDA-Public Use
  Company Number: US-GILEAD-2021-0524413

PATIENT
  Age: 55 Year
  Sex: Female
  Weight: 96.3 kg

DRUGS (1)
  1. VEKLURY [Suspect]
     Active Substance: REMDESIVIR
     Indication: COVID-19
     Dosage: 200 MG, ONCE
     Route: 040
     Dates: start: 20210406, end: 20210406

REACTIONS (10)
  - Lethargy [Unknown]
  - Pallor [Unknown]
  - Headache [Unknown]
  - Infusion related hypersensitivity reaction [Recovering/Resolving]
  - Hypotension [Recovering/Resolving]
  - Nausea [Recovered/Resolved]
  - Hyperhidrosis [Recovered/Resolved]
  - Tachycardia [Recovered/Resolved]
  - Hypertension [Recovered/Resolved]
  - Malaise [Unknown]

NARRATIVE: CASE EVENT DATE: 20210406
